FAERS Safety Report 21039467 (Version 1)
Quarter: 2022Q3

REPORT INFORMATION
  Report Type: Spontaneous
  Country: FR (occurrence: None)
  Receive Date: 20220704
  Receipt Date: 20220704
  Transmission Date: 20221026
  Serious: Yes (Hospitalization)
  Sender: FDA-Public Use
  Company Number: None

PATIENT
  Age: 86 Year
  Sex: Male

DRUGS (9)
  1. TOCILIZUMAB [Suspect]
     Active Substance: TOCILIZUMAB
     Indication: Rheumatoid arthritis
     Route: 058
     Dates: start: 20200309, end: 202010
  2. PREDNISONE [Suspect]
     Active Substance: PREDNISONE
     Indication: Rheumatoid arthritis
     Route: 048
  3. SILODOSIN [Concomitant]
     Active Substance: SILODOSIN
  4. ISOPHANE INSULIN [Concomitant]
     Active Substance: INSULIN NOS
  5. ACETAMINOPHEN [Concomitant]
     Active Substance: ACETAMINOPHEN
  6. FLECTOR [Concomitant]
     Active Substance: DICLOFENAC EPOLAMINE
  7. FLUINDIONE [Concomitant]
     Active Substance: FLUINDIONE
  8. ACTRAPID [Concomitant]
     Active Substance: INSULIN HUMAN
  9. METFORMIN PAMOATE [Concomitant]
     Active Substance: METFORMIN PAMOATE

REACTIONS (1)
  - Infection [Recovered/Resolved]

NARRATIVE: CASE EVENT DATE: 20200701
